FAERS Safety Report 7496246-9 (Version None)
Quarter: 2011Q2

REPORT INFORMATION
  Report Type: 
  Country: None (occurrence: None)
  Receive Date: 20110523
  Receipt Date: 20110518
  Transmission Date: 20111010
  Serious: Yes (Death, Hospitalization)
  Sender: FDA-Public Use
  Company Number: PHHY2011US33934

PATIENT
  Sex: Female

DRUGS (6)
  1. VALIUM [Concomitant]
     Dosage: UNK
  2. NORCO [Concomitant]
     Dosage: UNK
  3. FAMPRIDINE [Concomitant]
     Dosage: UNK
  4. GILENYA [Suspect]
     Dosage: 0.5 MG, QD
     Route: 048
     Dates: start: 20101101
  5. LEXAPRO [Concomitant]
     Dosage: UNK
  6. XANAX [Concomitant]
     Dosage: UNK

REACTIONS (2)
  - MEDICATION ERROR [None]
  - DEATH [None]
